FAERS Safety Report 8914511 (Version 2)
Quarter: 2012Q4

REPORT INFORMATION
  Report Type: 
  Country: None (occurrence: US)
  Receive Date: 20121116
  Receipt Date: 20121123
  Transmission Date: 20130627
  Serious: Yes (Other)
  Sender: FDA-Public Use
  Company Number: US-ABBOTT-11P-163-0883276-00

PATIENT
  Age: 38 Year
  Sex: Female

DRUGS (2)
  1. LUPRON DEPOT [Suspect]
     Indication: PATERNAL DRUGS AFFECTING FOETUS
     Route: 050
  2. LUPRON DEPOT [Suspect]
     Route: 064

REACTIONS (5)
  - Abortion spontaneous [Unknown]
  - Vaginal haemorrhage [Unknown]
  - Pelvic pain [Unknown]
  - Haemorrhage [Unknown]
  - Human chorionic gonadotropin decreased [Unknown]
